FAERS Safety Report 5049330-3 (Version None)
Quarter: 2006Q2

REPORT INFORMATION
  Report Type: 
  Country: None (occurrence: None)
  Receive Date: 20060613
  Receipt Date: 20060322
  Transmission Date: 20061013
  Serious: No
  Sender: FDA-Public Use
  Company Number: 2006-00653

PATIENT
  Age: 70 Year
  Sex: Male
  Weight: 89.3 kg

DRUGS (9)
  1. VELCADE [Suspect]
     Indication: MULTIPLE MYELOMA
     Dates: start: 20060320, end: 20060320
  2. TOPROL-XL [Concomitant]
  3. TRAMADOL HCL [Concomitant]
  4. PROTONIX [Concomitant]
  5. NORVASC [Concomitant]
  6. COREG [Concomitant]
  7. COUMADIN [Concomitant]
  8. SODIUM BICARBONATE IN PLASTIC CONTAINER [Concomitant]
  9. GLYBURIDE [Concomitant]

REACTIONS (1)
  - INSOMNIA [None]
